FAERS Safety Report 15924199 (Version 1)
Quarter: 2019Q1

REPORT INFORMATION
  Report Type: Spontaneous
  Country: IT (occurrence: IT)
  Receive Date: 20190206
  Receipt Date: 20190206
  Transmission Date: 20190417
  Serious: Yes (Hospitalization)
  Sender: FDA-Public Use
  Company Number: IT-SA-2019SA031742

PATIENT
  Age: 76 Year
  Sex: Male
  Weight: 74 kg

DRUGS (3)
  1. JEVTANA [Suspect]
     Active Substance: CABAZITAXEL
     Indication: PROSTATE CANCER
     Dosage: 47 MG, QCY
     Route: 040
     Dates: start: 20181022, end: 20181022
  2. ZOLEDRONIC ACID MYLAN [Concomitant]
     Active Substance: ZOLEDRONIC ACID
     Dosage: 4 MG
     Route: 042
     Dates: start: 20181218, end: 20181218
  3. JEVTANA [Suspect]
     Active Substance: CABAZITAXEL
     Dosage: 47 MG, QCY
     Route: 040
     Dates: start: 20181228, end: 20181228

REACTIONS (2)
  - Q fever [Recovered/Resolved]
  - Pancytopenia [Recovered/Resolved]

NARRATIVE: CASE EVENT DATE: 20190104
